FAERS Safety Report 19847673 (Version 2)
Quarter: 2021Q3

REPORT INFORMATION
  Report Type: Spontaneous
  Country: CN (occurrence: CN)
  Receive Date: 20210917
  Receipt Date: 20210922
  Transmission Date: 20211014
  Serious: Yes (Hospitalization, Other)
  Sender: FDA-Public Use
  Company Number: CN-ASTRAZENECA-2021A712092

PATIENT
  Age: 77 Year
  Sex: Female
  Weight: 60 kg

DRUGS (6)
  1. TAGRISSO [Suspect]
     Active Substance: OSIMERTINIB
     Indication: NON-SMALL CELL LUNG CANCER
     Dosage: 3 OR 4 MONTHS
     Route: 048
  2. CREATININE?LOWERING DRUG [Concomitant]
     Indication: BLOOD CREATININE INCREASED
     Route: 048
  3. ONDANSETRON [Concomitant]
     Active Substance: ONDANSETRON
     Indication: HYPERTENSION
     Dosage: 10 OR 11 DAYS
     Route: 048
  4. CATEQUENTINIB. [Concomitant]
     Active Substance: CATEQUENTINIB
     Indication: NON-SMALL CELL LUNG CANCER
     Dosage: 3 OR 4 MONTHS
     Route: 048
  5. ZOLEDRONIC ACID [Concomitant]
     Active Substance: ZOLEDRONIC ACID
     Indication: METASTASES TO BONE
     Dosage: 4MG EACH TIME PLUS 100ML SALINE, ONCE INJECTION A MONTH
     Route: 041
  6. BLOOD PRESSURE LOWERING DRUG [Concomitant]
     Indication: HYPERTENSION
     Route: 048

REACTIONS (4)
  - Vomiting [Recovering/Resolving]
  - Nausea [Recovering/Resolving]
  - Blood creatinine increased [Not Recovered/Not Resolved]
  - Metastases to bone [Unknown]
